FAERS Safety Report 18087777 (Version 3)
Quarter: 2020Q3

REPORT INFORMATION
  Report Type: Spontaneous
  Country: PL (occurrence: PL)
  Receive Date: 20200729
  Receipt Date: 20200824
  Transmission Date: 20201103
  Serious: Yes (Other)
  Sender: FDA-Public Use
  Company Number: PL-VERITY PHARMACEUTICALS, INC.-2020VTY00145

PATIENT
  Age: 66 Year
  Sex: Male

DRUGS (8)
  1. OMNIC OCAS [Suspect]
     Active Substance: TAMSULOSIN HYDROCHLORIDE
     Indication: PROSTATE CANCER
     Dosage: 0.4 MG, 1X/DAY
     Route: 065
     Dates: start: 20161001
  2. APO?FLUTAM [Suspect]
     Active Substance: FLUTAMIDE
     Indication: PROSTATE CANCER
     Dosage: 250 MG, 1X/DAY
     Route: 048
     Dates: start: 20161001
  3. TRIPTORELIN PAMOATE [Suspect]
     Active Substance: TRIPTORELIN PAMOATE
     Indication: OFF LABEL USE
  4. XELODA [Suspect]
     Active Substance: CAPECITABINE
     Indication: RECTAL CANCER
     Dosage: 4300 MG, 1X/DAY
     Route: 048
     Dates: start: 20170123
  5. GLUCOPHAGE XR [Suspect]
     Active Substance: METFORMIN HYDROCHLORIDE
     Indication: DIABETES MELLITUS
     Dosage: 1000 MG, 1X/DAY
     Route: 065
  6. TRIPTORELIN PAMOATE [Suspect]
     Active Substance: TRIPTORELIN PAMOATE
     Indication: RECTAL CANCER
     Dosage: UNK
     Route: 048
     Dates: start: 201610
  7. HUMALOG MIX75/25 [Suspect]
     Active Substance: INSULIN LISPRO
     Indication: DIABETES MELLITUS
     Dosage: 18 UNITS ? 20 UNITS 1X/DAY
  8. INSULIN LISPRO [Concomitant]
     Active Substance: INSULIN LISPRO
     Indication: DIABETES MELLITUS
     Dosage: 18 UNITS ? 20 UNITS
     Route: 065

REACTIONS (8)
  - Decreased appetite [Not Recovered/Not Resolved]
  - Lacrimation increased [Not Recovered/Not Resolved]
  - Cardiac disorder [Not Recovered/Not Resolved]
  - Asthenia [Not Recovered/Not Resolved]
  - Taste disorder [Not Recovered/Not Resolved]
  - Cough [Not Recovered/Not Resolved]
  - Pain in extremity [Not Recovered/Not Resolved]
  - Off label use [Unknown]

NARRATIVE: CASE EVENT DATE: 201610
